FAERS Safety Report 17648986 (Version 4)
Quarter: 2022Q4

REPORT INFORMATION
  Report Type: Spontaneous
  Country: NL (occurrence: NL)
  Receive Date: 20200409
  Receipt Date: 20221210
  Transmission Date: 20230112
  Serious: Yes (Other)
  Sender: FDA-Public Use
  Company Number: NL-TEVA-2020-NL-1215914

PATIENT
  Age: 19 Year
  Sex: Male
  Weight: 75 kg

DRUGS (2)
  1. VALPROATE SODIUM [Suspect]
     Active Substance: VALPROATE SODIUM
     Indication: Epilepsy
     Dosage: 1500 MILLIGRAM DAILY; 2 TABLETS IN THE MORNING AND 3 TABLETS IN THE EVENING
     Route: 048
     Dates: start: 20191210, end: 20200228
  2. LAMOTRIGINE [Concomitant]
     Active Substance: LAMOTRIGINE
     Indication: Epilepsy
     Dosage: 1 DOSAGE FORMS DAILY;
     Route: 048
     Dates: start: 20150301

REACTIONS (5)
  - Epilepsy [Recovered/Resolved]
  - Petit mal epilepsy [Recovered/Resolved]
  - Seizure cluster [Recovered/Resolved]
  - Product substitution issue [Unknown]
  - Product physical issue [Unknown]

NARRATIVE: CASE EVENT DATE: 20191210
